FAERS Safety Report 7208871-0 (Version None)
Quarter: 2011Q1

REPORT INFORMATION
  Report Type: 
  Country: None (occurrence: None)
  Receive Date: 20110104
  Receipt Date: 20101224
  Transmission Date: 20110831
  Serious: Yes (Other)
  Sender: FDA-Public Use
  Company Number: JP-JNJFOC-20101208630

PATIENT
  Age: 4 Decade
  Sex: Male

DRUGS (5)
  1. RISPERDAL [Suspect]
     Indication: ILL-DEFINED DISORDER
     Route: 048
  2. BROTIZOLAM [Concomitant]
     Route: 048
  3. TRIHEXYPHENIDYL HCL [Concomitant]
     Route: 048
  4. FLUNITRAZEPAM [Concomitant]
     Route: 065
  5. DIAZEPAM [Concomitant]
     Route: 065

REACTIONS (1)
  - BINOCULAR EYE MOVEMENT DISORDER [None]
